FAERS Safety Report 5698111-6 (Version None)
Quarter: 2008Q2

REPORT INFORMATION
  Report Type: 
  Country: None (occurrence: None)
  Receive Date: 20080403
  Receipt Date: 20080321
  Transmission Date: 20081010
  Serious: No
  Sender: FDA-Public Use
  Company Number: 000340

PATIENT
  Age: 63 Year
  Sex: Female

DRUGS (2)
  1. BUSULFEX [Suspect]
     Indication: STEM CELL TRANSPLANT
     Dosage: 24 ML,  INTRAVENOUS
     Route: 042
     Dates: start: 20071019, end: 20071020
  2. TACROLIMUS [Concomitant]

REACTIONS (3)
  - BONE MARROW TRANSPLANT [None]
  - HEPATIC FUNCTION ABNORMAL [None]
  - RENAL IMPAIRMENT [None]
